FAERS Safety Report 7820020-4 (Version None)
Quarter: 2011Q4

REPORT INFORMATION
  Report Type: 
  Country: None (occurrence: None)
  Receive Date: 20111018
  Receipt Date: 20111006
  Transmission Date: 20120403
  Serious: Yes (Other)
  Sender: FDA-Public Use
  Company Number: PHHY2011JP90093

PATIENT
  Sex: Male

DRUGS (9)
  1. AMLODIPINE [Concomitant]
     Dosage: 5 MG, DAILY
     Route: 048
  2. NIPOLAZIN [Concomitant]
     Dosage: 6 MG, DAILY
     Route: 048
     Dates: start: 20090811
  3. BETNEVATE N [Concomitant]
     Dosage: 5 G, DAILY
     Route: 061
  4. VESICARE [Concomitant]
     Dosage: 5 MG, DAILY
     Route: 048
  5. MUCOSTA [Concomitant]
     Indication: PROPHYLAXIS
     Dosage: 300 MG, DAILY
     Route: 048
  6. OMEPRAZOLE [Concomitant]
     Dosage: 10 MG, DAILY
     Route: 048
  7. NIPOLAZIN [Concomitant]
     Indication: PROPHYLAXIS
     Dosage: 12 MG, DAILY
     Route: 048
     Dates: start: 20090811
  8. TASIGNA [Suspect]
     Indication: CHRONIC MYELOID LEUKAEMIA
     Dosage: 800 MG, DAILY
     Route: 048
     Dates: start: 20090730
  9. LEVOFLOXACIN [Concomitant]
     Dosage: 5 ML, DAILY
     Route: 047

REACTIONS (1)
  - BLOOD PHOSPHORUS DECREASED [None]
